FAERS Safety Report 10228848 (Version 2)
Quarter: 2014Q2

REPORT INFORMATION
  Report Type: Spontaneous
  Country: US (occurrence: US)
  Receive Date: 20140610
  Receipt Date: 20140612
  Transmission Date: 20141212
  Serious: Yes (Other)
  Sender: FDA-Public Use
  Company Number: US-TEVA-486987USA

PATIENT
  Age: 60 Year
  Sex: Male
  Weight: 87.17 kg

DRUGS (5)
  1. ACTIQ [Suspect]
     Indication: FALL
     Dosage: 2400 MICROGRAM DAILY;
     Route: 048
     Dates: start: 1998, end: 20140516
  2. ACTIQ [Suspect]
     Indication: NERVE INJURY
  3. CELEBREX [Concomitant]
     Indication: PAIN
  4. AMBIEN [Concomitant]
     Indication: SLEEP DISORDER
  5. OXYCONTIN [Concomitant]
     Indication: PAIN
     Dosage: 180 MILLIGRAM DAILY;

REACTIONS (6)
  - Pneumonia [Not Recovered/Not Resolved]
  - Pain [Not Recovered/Not Resolved]
  - Insomnia [Not Recovered/Not Resolved]
  - Pain [Not Recovered/Not Resolved]
  - Off label use [Unknown]
  - Mobility decreased [Unknown]
